FAERS Safety Report 21498719 (Version 2)
Quarter: 2022Q4

REPORT INFORMATION
  Report Type: Other
  Country: US (occurrence: US)
  Receive Date: 20221024
  Receipt Date: 20221115
  Transmission Date: 20230112
  Serious: Yes (Hospitalization, Other)
  Sender: FDA-Public Use
  Company Number: US-Covis Pharma GmbH-2022COV22048

PATIENT
  Age: 30 Year
  Sex: Female
  Weight: 96.248 kg

DRUGS (2)
  1. MAKENA [Suspect]
     Active Substance: HYDROXYPROGESTERONE CAPROATE
     Indication: Premature delivery
     Route: 058
     Dates: start: 20200720, end: 20221010
  2. VITAMINS [Concomitant]
     Active Substance: VITAMINS
     Indication: Product used for unknown indication
     Dosage: 1 TAB
     Dates: start: 20220524, end: 20221012

REACTIONS (8)
  - Vaginal haemorrhage [Recovered/Resolved]
  - Transverse presentation [Recovered/Resolved]
  - Cervical incompetence [Recovered/Resolved]
  - Premature delivery [Recovered/Resolved]
  - Vaginal infection [Unknown]
  - Anaemia [Unknown]
  - Streptococcus test positive [Unknown]
  - COVID-19 [Unknown]

NARRATIVE: CASE EVENT DATE: 20220101
